FAERS Safety Report 14849713 (Version 16)
Quarter: 2019Q4

REPORT INFORMATION
  Report Type: Report from Study
  Country: CA (occurrence: CA)
  Receive Date: 20180504
  Receipt Date: 20191004
  Transmission Date: 20200122
  Serious: Yes (Other)
  Sender: FDA-Public Use
  Company Number: CA-PFIZER INC-2018185611

PATIENT
  Age: 62 Year
  Sex: Female
  Weight: 97 kg

DRUGS (16)
  1. PANTOPRAZOLE [Suspect]
     Active Substance: PANTOPRAZOLE
     Dosage: UNK UNK, 2X/DAY
     Route: 065
     Dates: start: 20180416
  2. IRBESARTAN HCT [Concomitant]
     Active Substance: HYDROCHLOROTHIAZIDE\IRBESARTAN
     Dosage: UNK
     Route: 065
  3. VITAMIN D [Concomitant]
     Active Substance: VITAMIN D NOS
     Dosage: UNK
     Route: 065
  4. FERROUS SULFATE. [Concomitant]
     Active Substance: FERROUS SULFATE
     Dosage: UNK
     Route: 065
  5. SIGNIFOR [Suspect]
     Active Substance: PASIREOTIDE
     Dosage: 0.9 MG, 2X/DAY
     Route: 058
     Dates: start: 20180801
  6. JANUMET [Concomitant]
     Active Substance: METFORMIN HYDROCHLORIDE\SITAGLIPTIN PHOSPHATE
     Dosage: UNK
     Route: 065
  7. PANTOLOC [PANTOPRAZOLE SODIUM SESQUIHYDRATE] [Concomitant]
     Active Substance: PANTOPRAZOLE SODIUM
     Dosage: UNK
     Route: 065
  8. SIGNIFOR [Suspect]
     Active Substance: PASIREOTIDE
     Indication: PITUITARY-DEPENDENT CUSHING^S SYNDROME
     Dosage: 0.3 MG, 2X/DAY
     Route: 030
     Dates: start: 20180308
  9. CARBAMIDE [Concomitant]
     Active Substance: UREA
     Dosage: UNK
  10. CABERGOLINE. [Concomitant]
     Active Substance: CABERGOLINE
     Dosage: UNK
     Route: 065
  11. CALCIUM [Concomitant]
     Active Substance: CALCIUM
     Dosage: UNK
     Route: 065
  12. IRON [Concomitant]
     Active Substance: IRON
     Dosage: UNK
     Route: 065
  13. SIGNIFOR [Suspect]
     Active Substance: PASIREOTIDE
     Dosage: 0.6 MG, 2X/DAY
     Route: 030
     Dates: start: 201803, end: 20180416
  14. CRESTOR [Concomitant]
     Active Substance: ROSUVASTATIN CALCIUM
     Dosage: UNK
     Route: 065
  15. CORTEF [Suspect]
     Active Substance: HYDROCORTISONE
     Dosage: UNK
     Route: 065
  16. UREA. [Concomitant]
     Active Substance: UREA
     Dosage: UNK
     Route: 065

REACTIONS (37)
  - Blood glucose abnormal [Recovering/Resolving]
  - Furuncle [Unknown]
  - Blood urine present [Unknown]
  - Injection site pain [Unknown]
  - Pain [Unknown]
  - Fatigue [Unknown]
  - Asthenia [Unknown]
  - Chest pain [Recovered/Resolved]
  - Dysuria [Not Recovered/Not Resolved]
  - Hydrothorax [Recovered/Resolved]
  - Dyspnoea [Recovering/Resolving]
  - Somnolence [Unknown]
  - Gait inability [Unknown]
  - Uterine polyp [Unknown]
  - Abnormal faeces [Recovered/Resolved]
  - Uterine mass [Unknown]
  - Balance disorder [Unknown]
  - Injection site vesicles [Unknown]
  - Hyperglycaemia [Unknown]
  - Dysphagia [Unknown]
  - Vomiting [Recovered/Resolved]
  - Frequent bowel movements [Unknown]
  - Weight increased [Unknown]
  - Abdominal pain upper [Unknown]
  - Abdominal pain [Unknown]
  - Nausea [Unknown]
  - Peripheral swelling [Unknown]
  - Menstrual disorder [Recovering/Resolving]
  - Uterine haemorrhage [Unknown]
  - Dyspnoea exertional [Unknown]
  - Dizziness [Unknown]
  - Abdominal pain lower [Recovered/Resolved]
  - Headache [Unknown]
  - Nausea [Recovered/Resolved]
  - Abdominal pain lower [Recovered/Resolved]
  - Abdominal discomfort [Unknown]
  - Vaginal haemorrhage [Unknown]

NARRATIVE: CASE EVENT DATE: 201803
